FAERS Safety Report 8984348 (Version 1)
Quarter: 2012Q4

REPORT INFORMATION
  Report Type: 
  Country: US (occurrence: US)
  Receive Date: 20121226
  Receipt Date: 20121226
  Transmission Date: 20130627
  Serious: No
  Sender: FDA-Public Use
  Company Number: US-009507513-1212USA008800

PATIENT
  Age: 22 Year
  Sex: Female
  Weight: 65.76 kg

DRUGS (2)
  1. IMPLANON [Suspect]
     Indication: CONTRACEPTION
     Dosage: every 3 years
     Route: 059
     Dates: start: 20110129
  2. ALBUTEROL [Concomitant]

REACTIONS (1)
  - Unintended pregnancy [Unknown]
